FAERS Safety Report 10190041 (Version 1)
Quarter: 2014Q2

REPORT INFORMATION
  Report Type: Report from Study
  Country: AR (occurrence: AR)
  Receive Date: 20140522
  Receipt Date: 20140522
  Transmission Date: 20141212
  Serious: Yes (Hospitalization, Other)
  Sender: FDA-Public Use
  Company Number: PHHY2014AR060496

PATIENT
  Sex: Male

DRUGS (2)
  1. EXFORGE [Suspect]
     Indication: HYPERTENSION
     Dosage: 1 DF, (160/5 MG) DAILY
     Route: 048
     Dates: start: 2007
  2. DIOVAN [Concomitant]
     Dosage: 80 MG, UNK
     Dates: start: 201401

REACTIONS (4)
  - Renal neoplasm [Recovered/Resolved]
  - Nosocomial infection [Recovered/Resolved]
  - Neoplasm progression [Not Recovered/Not Resolved]
  - Diabetes mellitus [Unknown]
